FAERS Safety Report 24060265 (Version 1)
Quarter: 2024Q3

REPORT INFORMATION
  Report Type: Spontaneous
  Country: US (occurrence: US)
  Receive Date: 20240708
  Receipt Date: 20240708
  Transmission Date: 20241016
  Serious: No
  Sender: FERRING
  Company Number: US-FERRINGPH-2024FE02319

PATIENT
  Age: 74 Year
  Sex: Male

DRUGS (2)
  1. ADSTILADRIN [Suspect]
     Active Substance: NADOFARAGENE FIRADENOVEC-VNCG
     Indication: Product used for unknown indication
     Dosage: UNK, ONCE/SINGLE
     Route: 065
     Dates: start: 20240501, end: 20240501
  2. ROSUVASTATIN [Concomitant]
     Active Substance: ROSUVASTATIN
     Indication: Product used for unknown indication
     Dosage: UNK
     Route: 065

REACTIONS (6)
  - Presyncope [Unknown]
  - Dizziness [Unknown]
  - Gait disturbance [Unknown]
  - Feeling abnormal [Unknown]
  - Chills [Unknown]
  - Instillation site discharge [Unknown]

NARRATIVE: CASE EVENT DATE: 20240501
